FAERS Safety Report 4725625-5 (Version None)
Quarter: 2005Q3

REPORT INFORMATION
  Report Type: 
  Country: None (occurrence: None)
  Receive Date: 20050727
  Receipt Date: 20050428
  Transmission Date: 20060218
  Serious: Yes (Hospitalization)
  Sender: FDA-Public Use
  Company Number: US-MERCK-0505USA00236

PATIENT
  Age: 59 Year
  Sex: Male
  Weight: 91 kg

DRUGS (5)
  1. VIOXX [Suspect]
     Indication: ARTHRITIS
     Route: 048
     Dates: start: 20001101, end: 20041101
  2. VIOXX [Suspect]
     Indication: ARTHRALGIA
     Route: 048
     Dates: start: 20001101, end: 20041101
  3. ASPIRIN [Concomitant]
     Indication: ARTHRALGIA
     Route: 065
     Dates: start: 19670101
  4. ALEVE [Concomitant]
     Indication: PAIN
     Route: 065
     Dates: start: 20030101
  5. CELEBREX [Concomitant]
     Route: 065
     Dates: start: 20001101

REACTIONS (6)
  - ARTHROPATHY [None]
  - ATHEROSCLEROSIS [None]
  - BLOOD CHOLESTEROL INCREASED [None]
  - DIABETES MELLITUS [None]
  - HYPERTENSION [None]
  - MYOCARDIAL INFARCTION [None]
